FAERS Safety Report 10312218 (Version 3)
Quarter: 2014Q3

REPORT INFORMATION
  Report Type: Spontaneous
  Country: JP (occurrence: JP)
  Receive Date: 20140718
  Receipt Date: 20140926
  Transmission Date: 20150326
  Serious: Yes (Death)
  Sender: FDA-Public Use
  Company Number: JP-AMGEN INC.-JPNSP2014021760

PATIENT
  Age: 76 Year
  Sex: Male
  Weight: 73 kg

DRUGS (13)
  1. ENBREL [Suspect]
     Active Substance: ETANERCEPT
     Indication: RHEUMATOID ARTHRITIS
     Dosage: 25 MG, CYCLIC (EVERY 5 DAYS)
     Route: 058
     Dates: start: 20101111, end: 20140218
  2. AVOLVE [Concomitant]
     Active Substance: DUTASTERIDE
     Indication: BENIGN PROSTATIC HYPERPLASIA
     Dosage: 1 DF, DAILY
     Dates: start: 20070131
  3. NEUQUINON [Concomitant]
     Active Substance: UBIDECARENONE
     Indication: ARRHYTHMIA
     Dosage: 10 MG, 3X/DAY
     Dates: start: 20070131
  4. MYTEAR                             /00883501/ [Concomitant]
     Dosage: UNK
     Dates: start: 20140219
  5. METHOTREXATE [Concomitant]
     Active Substance: METHOTREXATE
     Dosage: 5 MG, WEEKLY
     Route: 048
     Dates: start: 199607
  6. PRAZAXA [Concomitant]
     Active Substance: DABIGATRAN ETEXILATE MESYLATE
     Indication: ARRHYTHMIA
     Dosage: 220 MG, DAILY
     Dates: start: 20131102
  7. HYALEIN [Concomitant]
     Active Substance: HYALURONATE SODIUM
     Indication: SJOGREN^S SYNDROME
     Dosage: UNK
     Route: 047
     Dates: start: 20140219
  8. PANVITAN                           /07504101/ [Concomitant]
     Dosage: UNK
  9. CELTECT [Concomitant]
     Indication: PROPHYLAXIS AGAINST GASTROINTESTINAL ULCER
     Dosage: 1.5 G, 3X/DAY
     Dates: start: 20070131
  10. ENBREL [Suspect]
     Active Substance: ETANERCEPT
     Dosage: 50 MG, CYCLIC (EVERY 5 DAYS)
     Route: 058
     Dates: start: 20140219, end: 20140219
  11. PREDONINE [Concomitant]
     Active Substance: PREDNISOLONE\PREDNISOLONE ACETATE\PREDNISOLONE SODIUM SUCCINATE
     Dosage: 5 MG, ALTERNATE DAY
     Route: 048
     Dates: start: 20070711
  12. OLMETEC [Concomitant]
     Active Substance: OLMESARTAN MEDOXOMIL
     Dosage: 20 MG, 1X/DAY
     Route: 048
     Dates: start: 20070711
  13. MAINTATE [Concomitant]
     Active Substance: BISOPROLOL FUMARATE
     Indication: ARRHYTHMIA
     Dosage: 2.5 MG, 1X/DAY
     Dates: start: 20070131

REACTIONS (2)
  - Rash generalised [Recovering/Resolving]
  - Arrhythmia [Fatal]

NARRATIVE: CASE EVENT DATE: 20140628
